FAERS Safety Report 25956309 (Version 1)
Quarter: 2025Q4

REPORT INFORMATION
  Report Type: Spontaneous
  Country: US (occurrence: None)
  Receive Date: 20251023
  Receipt Date: 20251023
  Transmission Date: 20260119
  Serious: No
  Sender: FDA-CTU
  Company Number: None

PATIENT
  Age: 41 Year
  Sex: Female

DRUGS (1)
  1. LENALIDOMIDE [Suspect]
     Active Substance: LENALIDOMIDE
     Indication: Plasma cell myeloma
     Dosage: 25MG QD ORAL ?
     Route: 048
     Dates: start: 20250929

REACTIONS (7)
  - Chest discomfort [None]
  - Paraesthesia [None]
  - Nausea [None]
  - Pancytopenia [None]
  - Electrolyte imbalance [None]
  - Blood culture positive [None]
  - Bacterial infection [None]

NARRATIVE: CASE EVENT DATE: 20251020
